FAERS Safety Report 6405246-9 (Version None)
Quarter: 2009Q4

REPORT INFORMATION
  Report Type: 
  Country: None (occurrence: None)
  Receive Date: 20091014
  Receipt Date: 20090930
  Transmission Date: 20100525
  Serious: No
  Sender: FDA-Public Use
  Company Number: 2009AC000091

PATIENT
  Sex: Female
  Weight: 98.8842 kg

DRUGS (28)
  1. DIGOXIN [Suspect]
     Dosage: 0.125 MG;QD;PO
     Route: 048
  2. ICAR-C [Concomitant]
  3. LEVOTHYROXINE SODIUM [Concomitant]
  4. VERAPAMIL [Concomitant]
  5. METRONIDAZOL [Concomitant]
  6. AMOXICILLIN [Concomitant]
  7. MECLIZINE [Concomitant]
  8. METHYLPRED [Concomitant]
  9. TRAZODONE [Concomitant]
  10. MEDROXYPR AC [Concomitant]
  11. CEPHALEXIN [Concomitant]
  12. NYSTAT/TRIAM [Concomitant]
  13. COTRIM [Concomitant]
  14. BETHANECHOL [Concomitant]
  15. DOXYCYCL HYC [Concomitant]
  16. POLY-VENT [Concomitant]
  17. CPM/PSE [Concomitant]
  18. PROMETHEGAN [Concomitant]
  19. KETOCONAZOLE [Concomitant]
  20. MUPIROCIN [Concomitant]
  21. RIFAMPIN [Concomitant]
  22. TRIAMCINOLONE [Concomitant]
  23. TRAZODONE [Concomitant]
  24. LEVOTHYROXINE SODIUM [Concomitant]
  25. AVELOX [Concomitant]
  26. CIPROFLOXACIN HYDROCHLORIDE [Concomitant]
  27. POLY HIST [Concomitant]
  28. METOPROLOL [Concomitant]

REACTIONS (7)
  - CHILLS [None]
  - LUNG INFECTION [None]
  - MULTIPLE INJURIES [None]
  - NASAL CONGESTION [None]
  - OROPHARYNGEAL PAIN [None]
  - PAIN [None]
  - SWELLING [None]
